FAERS Safety Report 11095877 (Version 1)
Quarter: 2015Q2

REPORT INFORMATION
  Report Type: Spontaneous
  Country: US (occurrence: US)
  Receive Date: 20150507
  Receipt Date: 20150507
  Transmission Date: 20150821
  Serious: Yes (Hospitalization, Other)
  Sender: FDA-Public Use
  Company Number: US-SUN PHARMACEUTICAL INDUSTRIES LTD-2015SUN00986

PATIENT

DRUGS (1)
  1. LITHIUM CARBONATE TABLETS, USP 300MG [Suspect]
     Active Substance: LITHIUM CARBONATE
     Indication: BIPOLAR DISORDER
     Dosage: 300 MG, EVERY MORNING AND EVENING
     Route: 048
     Dates: start: 20150306, end: 20150405

REACTIONS (3)
  - Diplegia [Recovering/Resolving]
  - Drug level decreased [Recovering/Resolving]
  - Product substitution issue [Unknown]

NARRATIVE: CASE EVENT DATE: 20150306
